FAERS Safety Report 16780670 (Version 1)
Quarter: 2019Q3

REPORT INFORMATION
  Report Type: Spontaneous
  Country: BR (occurrence: BR)
  Receive Date: 20190906
  Receipt Date: 20190906
  Transmission Date: 20191005
  Serious: Yes (Hospitalization, Other)
  Sender: FDA-Public Use
  Company Number: BR-ROCHE-2366003

PATIENT
  Sex: Female

DRUGS (11)
  1. TEMOZOLOMIDE. [Concomitant]
     Active Substance: TEMOZOLOMIDE
     Indication: OLIGOASTROCYTOMA
     Dosage: ONCE A DAY DURING 5 DAYS, WITH INTERVAL OF 4 WEEKS
     Route: 065
  2. CLONAZEPAM. [Concomitant]
     Active Substance: CLONAZEPAM
  3. AVASTIN [Suspect]
     Active Substance: BEVACIZUMAB
     Indication: OLIGOASTROCYTOMA
     Dosage: 25 CYCLES - 2 ADMINISTRATIONS WERE 450MG
     Route: 065
     Dates: start: 20160519, end: 20180720
  4. DRAMAMINE [Suspect]
     Active Substance: DIMENHYDRINATE
     Indication: PRODUCT USED FOR UNKNOWN INDICATION
     Route: 065
  5. AVASTIN [Suspect]
     Active Substance: BEVACIZUMAB
     Route: 042
     Dates: start: 20190718
  6. CYCLOBENZAPRINE. [Concomitant]
     Active Substance: CYCLOBENZAPRINE
  7. LOMUSTINE. [Suspect]
     Active Substance: LOMUSTINE
     Indication: OLIGOASTROCYTOMA
     Route: 065
  8. IRINOTECAN [Concomitant]
     Active Substance: IRINOTECAN
     Indication: OLIGOASTROCYTOMA
     Route: 065
  9. TEMODAL [Concomitant]
     Active Substance: TEMOZOLOMIDE
     Indication: OLIGOASTROCYTOMA
  10. DEXCHLORPHENIRAMINE [Concomitant]
     Active Substance: DEXCHLORPHENIRAMINE
  11. MACRODANTIN [Concomitant]
     Active Substance: NITROFURANTOIN

REACTIONS (10)
  - Dyspnoea [Not Recovered/Not Resolved]
  - Weight bearing difficulty [Unknown]
  - Venous injury [Unknown]
  - Fall [Unknown]
  - Asthenia [Not Recovered/Not Resolved]
  - Platelet count decreased [Unknown]
  - Off label use [Unknown]
  - Somnolence [Not Recovered/Not Resolved]
  - Intentional product use issue [Unknown]
  - Brain oedema [Unknown]

NARRATIVE: CASE EVENT DATE: 20190721
